FAERS Safety Report 9280658 (Version 1)
Quarter: 2013Q2

REPORT INFORMATION
  Report Type: Spontaneous
  Country: US (occurrence: US)
  Receive Date: 20130509
  Receipt Date: 20130509
  Transmission Date: 20140414
  Serious: No
  Sender: FDA-Public Use
  Company Number: US-PFIZER INC-2013141567

PATIENT
  Age: 53 Year
  Sex: Male
  Weight: 117.91 kg

DRUGS (5)
  1. EFFEXOR XR [Suspect]
     Indication: DEPRESSION
     Dosage: 150 MG, 1X/DAY
     Route: 048
     Dates: end: 2011
  2. EFFEXOR XR [Suspect]
     Indication: ANXIETY
  3. TRAZODONE [Concomitant]
     Indication: SLEEP DISORDER
     Dosage: UNK
  4. ASPIRIN [Concomitant]
     Indication: CARDIOVASCULAR EVENT PROPHYLAXIS
     Dosage: UNK
  5. VITAMIN D [Concomitant]
     Dosage: UNK

REACTIONS (6)
  - Malaise [Unknown]
  - Headache [Unknown]
  - Nausea [Unknown]
  - Anxiety [Unknown]
  - Nervousness [Unknown]
  - Drug withdrawal syndrome [Unknown]
